FAERS Safety Report 24314484 (Version 1)
Quarter: 2024Q3

REPORT INFORMATION
  Report Type: Report from Study
  Country: EG (occurrence: EG)
  Receive Date: 20240913
  Receipt Date: 20240913
  Transmission Date: 20241017
  Serious: Yes (Other)
  Sender: SANDOZ
  Company Number: EG-SANDOZ-SDZ2024EG079115

PATIENT
  Age: 23 Year
  Sex: Female
  Weight: 105 kg

DRUGS (9)
  1. ERELZI [Suspect]
     Active Substance: ETANERCEPT-SZZS
     Indication: Rheumatoid arthritis
     Dosage: STARTED BY ONCE EVERY 10 DAYS THEN ONCE WEEKLY
     Route: 058
     Dates: start: 20231209
  2. Anselacox [Concomitant]
     Indication: Rheumatoid arthritis
     Dosage: ONCE AFTER BREAKFAST WHEN NEEDED (WEEKLY COURSE)
     Route: 048
     Dates: start: 202312
  3. MONTELUKAST SODIUM [Concomitant]
     Active Substance: MONTELUKAST\MONTELUKAST SODIUM
     Indication: Product used for unknown indication
     Dosage: 5 MG( 1 TAB) DAILY
     Route: 048
     Dates: start: 202006
  4. Cal mag [Concomitant]
     Indication: Rheumatoid arthritis
     Dosage: STARTED BY 1 TABLET DAILY FOR TWO MONTHS FOLLOWED BY ONCE WEEKLY
     Route: 048
     Dates: start: 202312
  5. FOLIC ACID [Concomitant]
     Active Substance: FOLIC ACID
     Indication: Product used for unknown indication
     Dosage: UNK, BIW
     Route: 048
     Dates: start: 202312
  6. METHOTREXATE [Concomitant]
     Active Substance: METHOTREXATE
     Indication: Rheumatoid arthritis
     Dosage: 8 TABLETS WEEKLY (4 AT MORNING AND 4 AT NIGHT ON SUNDAYS)
     Route: 048
     Dates: start: 2022
  7. SERPASS [Concomitant]
     Dosage: 1 DF, QD
     Route: 048
  8. Solupred [Concomitant]
     Indication: Rheumatoid arthritis
     Dosage: 1 TABLET DAILY AFTER BREAKFAST
     Route: 048
     Dates: start: 202312
  9. Zapimert [Concomitant]
     Indication: Product used for unknown indication
     Dosage: 0.5 DF, QD
     Route: 048

REACTIONS (5)
  - Immunodeficiency [Unknown]
  - Liver function test increased [Recovered/Resolved]
  - C-reactive protein increased [Not Recovered/Not Resolved]
  - Amoeba test positive [Not Recovered/Not Resolved]
  - Drug ineffective [Not Recovered/Not Resolved]

NARRATIVE: CASE EVENT DATE: 20240301
